FAERS Safety Report 7767241-7 (Version None)
Quarter: 2011Q3

REPORT INFORMATION
  Report Type: 
  Country: None (occurrence: None)
  Receive Date: 20110922
  Receipt Date: 20101129
  Transmission Date: 20111222
  Serious: No
  Sender: FDA-Public Use
  Company Number: US-ASTRAZENECA-2008UW01452

PATIENT
  Age: 24 Year
  Sex: Female
  Weight: 63.5 kg

DRUGS (14)
  1. CELEXA [Concomitant]
     Dates: start: 20030501
  2. PROZAC [Concomitant]
     Dates: start: 20040423
  3. ESKALITH [Concomitant]
     Dates: start: 19970306
  4. SEROQUEL [Suspect]
     Indication: BIPOLAR DISORDER
     Dosage: 300MG, 600MG, 900MG, 1200MG
     Route: 048
     Dates: start: 20000101, end: 20040101
  5. PROZAC [Concomitant]
     Route: 048
     Dates: start: 19970206, end: 19970306
  6. SEROQUEL [Suspect]
     Route: 048
     Dates: start: 20030418
  7. CLONAZEPAM [Concomitant]
     Dates: start: 20080501
  8. ZOMIG [Concomitant]
     Dates: start: 20030418
  9. SOMA/EOMAS [Concomitant]
     Dates: start: 20030501
  10. DOXEPIN [Concomitant]
     Dosage: 50 ONE HS
     Dates: start: 19961125
  11. CELEXA [Concomitant]
     Dosage: 40 PO AM
     Route: 048
     Dates: start: 20030418
  12. DEPO-PROVERA [Concomitant]
     Dates: start: 20030501
  13. SOMA/EOMAS [Concomitant]
     Dates: start: 20030418
  14. TRAZODONE HYDROCHLORIDE [Concomitant]
     Dates: start: 20040423

REACTIONS (8)
  - DIABETES MELLITUS [None]
  - HYPERGLYCAEMIA [None]
  - SYNCOPE [None]
  - GESTATIONAL DIABETES [None]
  - OVERWEIGHT [None]
  - BLOOD CHOLESTEROL INCREASED [None]
  - MENTAL DISORDER [None]
  - HYPOGLYCAEMIA [None]
